FAERS Safety Report 16138044 (Version 2)
Quarter: 2019Q2

REPORT INFORMATION
  Report Type: Spontaneous
  Country: US (occurrence: US)
  Receive Date: 20190330
  Receipt Date: 20190407
  Transmission Date: 20190711
  Serious: No
  Sender: FDA-Public Use
  Company Number: US-JNJFOC-20190300041

PATIENT
  Age: 33 Year
  Sex: Female
  Weight: 77.11 kg

DRUGS (2)
  1. TYLENOL EXTRA STRENGTH [Suspect]
     Active Substance: ACETAMINOPHEN
     Indication: MIGRAINE
     Dosage: DOSE OR QUANTITY: 1 PILL, PRODUCT USE FREQUENCY: ONCE
     Route: 048
     Dates: start: 20190226
  2. TYLENOL EXTRA STRENGTH [Suspect]
     Active Substance: ACETAMINOPHEN
     Indication: HEADACHE
     Dosage: DOSE OR QUANTITY: 1 PILL, PRODUCT USE FREQUENCY: ONCE
     Route: 048
     Dates: start: 20190226

REACTIONS (4)
  - Pharyngeal disorder [Not Recovered/Not Resolved]
  - Vomiting [Recovered/Resolved]
  - Oral mucosal eruption [Not Recovered/Not Resolved]
  - Incorrect dose administered [Unknown]

NARRATIVE: CASE EVENT DATE: 20190226
